FAERS Safety Report 7447040-6 (Version None)
Quarter: 2011Q2

REPORT INFORMATION
  Report Type: 
  Country: None (occurrence: None)
  Receive Date: 20110421
  Receipt Date: 20110412
  Transmission Date: 20111010
  Serious: Yes (Disabling)
  Sender: FDA-Public Use
  Company Number: CC11-0566

PATIENT
  Sex: Male

DRUGS (1)
  1. ERYTHROMYCIN AND BENZOYL PEROXIDE [Suspect]
     Indication: ACNE

REACTIONS (2)
  - THERMAL BURN [None]
  - SCAR [None]
